FAERS Safety Report 4676559-6 (Version None)
Quarter: 2005Q2

REPORT INFORMATION
  Report Type: 
  Country: None (occurrence: None)
  Receive Date: 20050526
  Receipt Date: 20050520
  Transmission Date: 20051028
  Serious: Yes (Death)
  Sender: FDA-Public Use
  Company Number: 05-05-0839

PATIENT
  Age: 54 Year
  Sex: Male

DRUGS (1)
  1. CLOZAPINE [Suspect]
     Dosage: 50-1050MG QD ORAL
     Route: 048
     Dates: start: 19990801, end: 20040301

REACTIONS (1)
  - LUNG NEOPLASM MALIGNANT [None]
